FAERS Safety Report 13183000 (Version 1)
Quarter: 2017Q1

REPORT INFORMATION
  Report Type: Spontaneous
  Country: US (occurrence: US)
  Receive Date: 20170203
  Receipt Date: 20170203
  Transmission Date: 20170428
  Serious: No
  Sender: FDA-Public Use
  Company Number: US-PFIZER INC-2017045316

PATIENT
  Age: 64 Year
  Sex: Female
  Weight: 59.87 kg

DRUGS (6)
  1. AMBIEN [Concomitant]
     Active Substance: ZOLPIDEM TARTRATE
     Indication: SLEEP DISORDER
     Dosage: 10 MG, AS NEEDED (AT BEDTIME)
     Dates: start: 2010
  2. PREMARIN [Suspect]
     Active Substance: ESTROGENS, CONJUGATED
     Indication: HORMONE REPLACEMENT THERAPY
     Dosage: 0.3 MG, DAILY
     Route: 048
  3. ZOLOFT [Concomitant]
     Active Substance: SERTRALINE HYDROCHLORIDE
     Indication: ANXIETY
     Dosage: 100 MG, 2X/DAY
     Route: 048
     Dates: start: 2010
  4. PROTONIX [Concomitant]
     Active Substance: PANTOPRAZOLE SODIUM
     Indication: GASTROOESOPHAGEAL REFLUX DISEASE
     Dosage: 40 MG, DAILY
     Route: 048
     Dates: start: 2008
  5. STADOL [Concomitant]
     Active Substance: BUTORPHANOL TARTRATE
     Indication: FIBROMYALGIA
     Dosage: 2 DF, AS NEEDED ((10MG/ML, ONE SPRAY EACH NOSTRIL EVERY 4 HOURS AS NEEDED))
     Route: 045
     Dates: start: 2008
  6. XANAX [Concomitant]
     Active Substance: ALPRAZOLAM
     Indication: ANXIETY
     Dosage: 1 MG, 3X/DAY
     Route: 048
     Dates: start: 2010

REACTIONS (1)
  - Anger [Unknown]

NARRATIVE: CASE EVENT DATE: 20170131
